FAERS Safety Report 10223265 (Version 1)
Quarter: 2014Q2

REPORT INFORMATION
  Report Type: Spontaneous
  Country: PH (occurrence: PH)
  Receive Date: 20140609
  Receipt Date: 20140609
  Transmission Date: 20141212
  Serious: Yes (Hospitalization)
  Sender: FDA-Public Use
  Company Number: PH-BRISTOL-MYERS SQUIBB COMPANY-20932216

PATIENT
  Sex: 0

DRUGS (1)
  1. BYETTA [Suspect]
     Indication: DIABETES MELLITUS

REACTIONS (1)
  - Convulsion [Unknown]
